FAERS Safety Report 7118613-5 (Version None)
Quarter: 2010Q4

REPORT INFORMATION
  Report Type: 
  Country: None (occurrence: None)
  Receive Date: 20101123
  Receipt Date: 20101110
  Transmission Date: 20110411
  Serious: Yes (Hospitalization)
  Sender: FDA-Public Use
  Company Number: HU-ELI_LILLY_AND_COMPANY-HU201009002401

PATIENT
  Age: 28 Year
  Sex: Female

DRUGS (1)
  1. ZYPADHERA [Suspect]
     Indication: PSYCHOTIC DISORDER
     Dosage: 300 MG/2 WEEKS
     Route: 030
     Dates: start: 20100501, end: 20100820

REACTIONS (9)
  - BACTERIAL INFECTION [None]
  - DIARRHOEA [None]
  - DISBACTERIOSIS [None]
  - GASTROINTESTINAL DISORDER [None]
  - HAEMODIALYSIS [None]
  - PYREXIA [None]
  - RENAL FAILURE [None]
  - SEPSIS [None]
  - SKIN EXFOLIATION [None]
